FAERS Safety Report 10345693 (Version 3)
Quarter: 2014Q3

REPORT INFORMATION
  Report Type: Spontaneous
  Country: CA (occurrence: CA)
  Receive Date: 20140728
  Receipt Date: 20140908
  Transmission Date: 20150326
  Serious: Yes (Hospitalization)
  Sender: FDA-Public Use
  Company Number: CA-GLAXOSMITHKLINE-A1081273A

PATIENT
  Sex: Female
  Weight: 47.3 kg

DRUGS (15)
  1. SEEBRI BREEZHALER [Suspect]
     Active Substance: GLYCOPYRRONIUM
     Indication: PRODUCT USED FOR UNKNOWN INDICATION
     Route: 065
  2. AEROCHAMBER [Suspect]
     Active Substance: DEVICE
     Indication: PRODUCT USED FOR UNKNOWN INDICATION
     Route: 065
  3. CLONAZEPAM. [Concomitant]
     Active Substance: CLONAZEPAM
  4. SPIRIVA [Suspect]
     Active Substance: TIOTROPIUM BROMIDE MONOHYDRATE
     Indication: PRODUCT USED FOR UNKNOWN INDICATION
     Route: 065
  5. PREDNISONE. [Suspect]
     Active Substance: PREDNISONE
     Indication: PRODUCT USED FOR UNKNOWN INDICATION
     Route: 065
  6. ADVAIR HFA [Suspect]
     Active Substance: FLUTICASONE PROPIONATE\SALMETEROL XINAFOATE
     Indication: CHRONIC OBSTRUCTIVE PULMONARY DISEASE
     Route: 055
  7. CLARITHROMYCIN. [Suspect]
     Active Substance: CLARITHROMYCIN
     Indication: PRODUCT USED FOR UNKNOWN INDICATION
     Route: 065
  8. UNKNOWN ANTIHYPERTENSIVE AGENT [Concomitant]
     Indication: HYPERTENSION
     Route: 065
  9. CIPRALEX [Suspect]
     Active Substance: ESCITALOPRAM OXALATE
  10. GABA [Concomitant]
     Active Substance: .GAMMA.-AMINOBUTYRIC ACID
     Indication: PRODUCT USED FOR UNKNOWN INDICATION
     Route: 065
  11. VENTOLIN [Suspect]
     Active Substance: ALBUTEROL SULFATE
     Indication: PRODUCT USED FOR UNKNOWN INDICATION
     Route: 065
  12. ATROVENT [Suspect]
     Active Substance: IPRATROPIUM BROMIDE
     Indication: PRODUCT USED FOR UNKNOWN INDICATION
     Route: 065
  13. UNKNOWN MEDICATION [Concomitant]
     Active Substance: UNSPECIFIED INGREDIENT
     Indication: HIATUS HERNIA
     Route: 065
  14. MELOXICAM. [Concomitant]
     Active Substance: MELOXICAM
  15. UNKNOWN DRUG FOR ANXIETY [Suspect]
     Active Substance: UNSPECIFIED INGREDIENT
     Indication: ANXIETY
     Route: 065

REACTIONS (31)
  - Bone disorder [Unknown]
  - Chest discomfort [Unknown]
  - Emphysema [Unknown]
  - Fall [Unknown]
  - Malaise [Unknown]
  - Headache [Unknown]
  - Panic reaction [Unknown]
  - Restlessness [Unknown]
  - Dyspnoea [Unknown]
  - Anxiety [Unknown]
  - Tremor [Unknown]
  - Insomnia [Unknown]
  - Thinking abnormal [Unknown]
  - Diarrhoea [Unknown]
  - Hiatus hernia [Unknown]
  - Pneumonia [Unknown]
  - Infection [Unknown]
  - Pruritus [Unknown]
  - Dizziness [Unknown]
  - Hypoaesthesia [Unknown]
  - Cyanosis [Unknown]
  - Fatigue [Unknown]
  - Drug ineffective [Unknown]
  - Decreased appetite [Unknown]
  - Dyspnoea exertional [Unknown]
  - Depression [Unknown]
  - Lung infection [Unknown]
  - Cough [Unknown]
  - Overdose [Unknown]
  - Pain [Unknown]
  - Asthenia [Unknown]
